FAERS Safety Report 6655166-X (Version None)
Quarter: 2010Q1

REPORT INFORMATION
  Report Type: 
  Country: None (occurrence: None)
  Receive Date: 20100329
  Receipt Date: 20100318
  Transmission Date: 20100710
  Serious: No
  Sender: FDA-Public Use
  Company Number: US-ROXANE LABORATORIES, INC.-2010-RO-00294RO

PATIENT
  Sex: Female

DRUGS (6)
  1. LITHIUM CARBONATE [Suspect]
     Indication: NERVOUS SYSTEM DISORDER
     Dosage: 900 MG
     Route: 048
  2. SPECIAL SEQUENCE AMINO ACIDS [Concomitant]
     Indication: NERVOUS SYSTEM DISORDER
     Dates: start: 20100301, end: 20100301
  3. VITAMINS [Concomitant]
  4. HORMONES [Concomitant]
  5. DHEA [Concomitant]
  6. THYROID TAB [Concomitant]

REACTIONS (7)
  - CRYING [None]
  - DEPRESSION [None]
  - DYSPHAGIA [None]
  - DYSPHONIA [None]
  - FATIGUE [None]
  - INSOMNIA [None]
  - VOLUME BLOOD DECREASED [None]
